FAERS Safety Report 6950806-X (Version None)
Quarter: 2010Q3

REPORT INFORMATION
  Report Type: 
  Country: None (occurrence: None)
  Receive Date: 20100828
  Receipt Date: 20100222
  Transmission Date: 20110219
  Serious: No
  Sender: FDA-Public Use
  Company Number: US-ABBOTT-10P-163-0629345-00

PATIENT
  Sex: Male
  Weight: 102.15 kg

DRUGS (6)
  1. NIASPAN [Suspect]
     Indication: CORONARY ARTERY DISEASE
     Dosage: 1000/20MG
     Route: 048
  2. NORVASC [Concomitant]
     Indication: PRODUCT USED FOR UNKNOWN INDICATION
  3. DIOVAN [Concomitant]
     Indication: PRODUCT USED FOR UNKNOWN INDICATION
  4. FISH OIL [Concomitant]
     Indication: PRODUCT USED FOR UNKNOWN INDICATION
  5. LOMICTAL [Concomitant]
     Indication: PRODUCT USED FOR UNKNOWN INDICATION
  6. PRESTIQUE [Concomitant]
     Indication: PRODUCT USED FOR UNKNOWN INDICATION

REACTIONS (1)
  - FLUSHING [None]
